FAERS Safety Report 7704739-1 (Version None)
Quarter: 2011Q3

REPORT INFORMATION
  Report Type: 
  Country: None (occurrence: None)
  Receive Date: 20110823
  Receipt Date: 20110816
  Transmission Date: 20111222
  Serious: Yes (Hospitalization, Other)
  Sender: FDA-Public Use
  Company Number: US-ABBOTT-11P-163-0838727-00

PATIENT
  Sex: Female
  Weight: 54.48 kg

DRUGS (5)
  1. LAMICTAL [Concomitant]
     Indication: BIPOLAR DISORDER
  2. HUMIRA [Suspect]
     Dates: start: 20110728
  3. HUMIRA [Suspect]
     Indication: CROHN'S DISEASE
     Dates: start: 20101110, end: 20110728
  4. PROZAC [Concomitant]
     Indication: BIPOLAR DISORDER
  5. XANAX [Concomitant]
     Indication: ANXIETY

REACTIONS (7)
  - ANAEMIA [None]
  - CROHN'S DISEASE [None]
  - ABDOMINAL PAIN [None]
  - MALAISE [None]
  - DRUG INEFFECTIVE [None]
  - PYREXIA [None]
  - GASTRIC ULCER [None]
